FAERS Safety Report 10506539 (Version 1)
Quarter: 2014Q4

REPORT INFORMATION
  Report Type: Spontaneous
  Country: BR (occurrence: BR)
  Receive Date: 20141009
  Receipt Date: 20141009
  Transmission Date: 20150528
  Serious: Yes (Life-Threatening, Hospitalization)
  Sender: FDA-Public Use
  Company Number: BR-BRISTOL-MYERS SQUIBB COMPANY-21460043

PATIENT
  Sex: Female

DRUGS (1)
  1. FORXIGA [Suspect]
     Active Substance: DAPAGLIFLOZIN
     Indication: TYPE 1 DIABETES MELLITUS
     Route: 048

REACTIONS (5)
  - Off label use [Unknown]
  - Ketoacidosis [Unknown]
  - Infection [Unknown]
  - Vulvovaginitis [Unknown]
  - Pyelonephritis [Unknown]

NARRATIVE: CASE EVENT DATE: 201409
